FAERS Safety Report 10363505 (Version 1)
Quarter: 2014Q1

REPORT INFORMATION
  Report Type: Spontaneous
  Country: US (occurrence: None)
  Receive Date: 20140306
  Receipt Date: 20140306
  Transmission Date: 20141002
  Serious: Yes (Hospitalization)
  Sender: FDA-Public Use
  Company Number: 163-21880-13061586

PATIENT
  Age: 59 Year
  Sex: Male

DRUGS (14)
  1. REVLIMID [Suspect]
     Indication: PLASMA CELL MYELOMA
     Route: 048
     Dates: start: 200907
  2. ACYCLOVIR (ACICLOVIR) (UNKNOWN) [Concomitant]
  3. COUMADIN (WARFARIN SODIUM) (UNKNOWN) [Concomitant]
  4. METOPROLOL SUCCINATE (UNKNOWN) [Concomitant]
  5. NEURONTIN (GABAPENTIN) (UNKNOWN) [Concomitant]
  6. PANTOPRAZOLE (UNKNOWN) [Concomitant]
  7. PENICILLIN (PENICILLIN NOS) (UNKNOWN) [Concomitant]
  8. PLAVIX (CLOPIDOGREL SULFATE) (UNKNOWN) [Concomitant]
  9. SIMVASTATIN (UNKNOWN) [Concomitant]
  10. VICODIN (UNKNOWN) [Concomitant]
  11. VITAMIN D (ERGOCALCIFEROL) (UNKNOWN) [Concomitant]
  12. MULTIVITAMINS (UNKNOWN) [Concomitant]
  13. COQ10 (UBIDECARENONE) (UNKNOWN) [Concomitant]
  14. IRON (UNKNOWN) [Concomitant]

REACTIONS (1)
  - Pneumonia [None]
